FAERS Safety Report 8505838-7 (Version None)
Quarter: 2012Q3

REPORT INFORMATION
  Report Type: 
  Country: None (occurrence: None)
  Receive Date: 20120712
  Receipt Date: 20120705
  Transmission Date: 20120928
  Serious: Yes (Hospitalization)
  Sender: FDA-Public Use
  Company Number: US-GILEAD-2012-0057594

PATIENT
  Sex: Female

DRUGS (1)
  1. RANEXA [Suspect]
     Indication: PRODUCT USED FOR UNKNOWN INDICATION
     Dosage: 1000 MG, BID

REACTIONS (3)
  - DRUG INEFFECTIVE [None]
  - CHEST PAIN [None]
  - MEDICATION RESIDUE [None]
